FAERS Safety Report 6794884-X (Version None)
Quarter: 2010Q2

REPORT INFORMATION
  Report Type: 
  Country: None (occurrence: None)
  Receive Date: 20100625
  Receipt Date: 20100616
  Transmission Date: 20101027
  Serious: Yes (Hospitalization)
  Sender: FDA-Public Use
  Company Number: US-ALEXION-A201000385

PATIENT
  Sex: Male

DRUGS (7)
  1. SOLIRIS [Suspect]
     Indication: PAROXYSMAL NOCTURNAL HAEMOGLOBINURIA
     Dosage: 600 MG, QWX4
     Route: 042
     Dates: start: 20100302, end: 20100322
  2. SOLIRIS [Suspect]
     Dosage: 900 MG, Q14 DAYS
     Route: 042
     Dates: start: 20100329
  3. FLOMAX [Concomitant]
     Dosage: UNK
  4. XALATAN [Concomitant]
     Dosage: UNK
  5. TIMOLOL MALEATE [Concomitant]
     Dosage: UNK
  6. COUMADIN [Concomitant]
     Dosage: UNK
     Dates: end: 20100406
  7. LOVENOX [Concomitant]
     Dosage: UNK
     Dates: start: 20100407

REACTIONS (6)
  - GASTROINTESTINAL HAEMORRHAGE [None]
  - HAEMATURIA [None]
  - NASOPHARYNGITIS [None]
  - OROPHARYNGEAL PAIN [None]
  - PLATELET COUNT DECREASED [None]
  - POOR VENOUS ACCESS [None]
